FAERS Safety Report 19241026 (Version 1)
Quarter: 2021Q2

REPORT INFORMATION
  Report Type: Spontaneous
  Country: US (occurrence: US)
  Receive Date: 20210511
  Receipt Date: 20210511
  Transmission Date: 20210717
  Serious: No
  Sender: FDA-Public Use
  Company Number: US-BEH-2021131280

PATIENT
  Age: 3 Year
  Sex: Male
  Weight: 14.51 kg

DRUGS (2)
  1. HIZENTRA [Suspect]
     Active Substance: HUMAN IMMUNOGLOBULIN G
     Indication: IMMUNODEFICIENCY COMMON VARIABLE
  2. HIZENTRA [Suspect]
     Active Substance: HUMAN IMMUNOGLOBULIN G
     Indication: IMMUNODEFICIENCY
     Dosage: 2 GRAM, QW
     Route: 065
     Dates: end: 202104

REACTIONS (5)
  - Mental disorder [Not Recovered/Not Resolved]
  - Emotional distress [Unknown]
  - Lymphadenopathy [Not Recovered/Not Resolved]
  - Lethargy [Unknown]
  - Irritability [Not Recovered/Not Resolved]

NARRATIVE: CASE EVENT DATE: 202104
